FAERS Safety Report 17899888 (Version 1)
Quarter: 2020Q2

REPORT INFORMATION
  Report Type: Spontaneous
  Country: US (occurrence: US)
  Receive Date: 20200616
  Receipt Date: 20200616
  Transmission Date: 20200714
  Serious: No
  Sender: FDA-Public Use
  Company Number: US-COVIS PHARMA B.V.-2019COV00163

PATIENT
  Sex: Female

DRUGS (10)
  1. LETARIS [Suspect]
     Active Substance: AMBRISENTAN
  2. ZOFRAN [Suspect]
     Active Substance: ONDANSETRON HYDROCHLORIDE
  3. PERIACTIN [Suspect]
     Active Substance: CYPROHEPTADINE HYDROCHLORIDE
  4. COUMADIN [Suspect]
     Active Substance: WARFARIN SODIUM
  5. UT-15C SR [Suspect]
     Active Substance: TREPROSTINIL DIOLAMINE
  6. CREON [Suspect]
     Active Substance: PANCRELIPASE AMYLASE\PANCRELIPASE LIPASE\PANCRELIPASE PROTEASE
  7. REMERON [Suspect]
     Active Substance: MIRTAZAPINE
  8. PRILOSEC [Suspect]
     Active Substance: OMEPRAZOLE MAGNESIUM
  9. REVATIO [Suspect]
     Active Substance: SILDENAFIL CITRATE
  10. ORENITRAM [Suspect]
     Active Substance: TREPROSTINIL

REACTIONS (2)
  - Diarrhoea [Not Recovered/Not Resolved]
  - Abdominal discomfort [Not Recovered/Not Resolved]
